FAERS Safety Report 4796937-4 (Version None)
Quarter: 2005Q4

REPORT INFORMATION
  Report Type: 
  Country: None (occurrence: None)
  Receive Date: 20051013
  Receipt Date: 20051003
  Transmission Date: 20060501
  Serious: Yes (Death)
  Sender: FDA-Public Use
  Company Number: US-JNJFOC-20050901957

PATIENT
  Age: 47 Year
  Sex: Female

DRUGS (1)
  1. RISPERIDONE [Suspect]
     Indication: DRUG USE FOR UNKNOWN INDICATION

REACTIONS (2)
  - NEUROLEPTIC MALIGNANT SYNDROME [None]
  - VENTRICULAR FIBRILLATION [None]
